FAERS Safety Report 5228846-0 (Version None)
Quarter: 2007Q1

REPORT INFORMATION
  Report Type: 
  Country: None (occurrence: None)
  Receive Date: 20070205
  Receipt Date: 20070201
  Transmission Date: 20070707
  Serious: Yes (Death, Life-Threatening, Hospitalization)
  Sender: FDA-Public Use
  Company Number: PHBS2007JP00890

PATIENT
  Age: 81 Year
  Sex: Male

DRUGS (6)
  1. LAMISIL [Suspect]
     Indication: TINEA CAPITIS
     Dosage: 125 MG/D
     Route: 048
     Dates: start: 20061111
  2. WARFARIN POTASSIUM [Suspect]
     Route: 048
  3. VITAMIN B6 [Concomitant]
     Route: 048
  4. VITAMIN B-12 [Concomitant]
     Route: 048
  5. CELESTONE [Concomitant]
     Route: 048
     Dates: start: 20061104, end: 20061107
  6. SOLON [Concomitant]
     Route: 048
     Dates: start: 20061104, end: 20061107

REACTIONS (5)
  - DRUG INTERACTION [None]
  - HEPATIC ENCEPHALOPATHY [None]
  - HEPATITIS FULMINANT [None]
  - RENAL FAILURE [None]
  - SEPTIC SHOCK [None]
